FAERS Safety Report 16950104 (Version 3)
Quarter: 2020Q1

REPORT INFORMATION
  Report Type: Spontaneous
  Country: US (occurrence: US)
  Receive Date: 20191023
  Receipt Date: 20200108
  Transmission Date: 20200409
  Serious: Yes (Other)
  Sender: FDA-Public Use
  Company Number: US-AUROBINDO-AUR-APL-2019-068257

PATIENT
  Age: 75 Year
  Sex: Female
  Weight: 57.61 kg

DRUGS (2)
  1. VITAMIN D [Concomitant]
     Active Substance: VITAMIN D NOS
     Indication: PRODUCT USED FOR UNKNOWN INDICATION
     Dosage: UNK
     Route: 065
  2. IBANDRONATE SODIUM TABLET 150 MG [Suspect]
     Active Substance: IBANDRONATE SODIUM
     Indication: OSTEOPOROSIS
     Dosage: 1 DOSAGE FORM, PER MONTH
     Route: 065
     Dates: start: 20191011, end: 20191011

REACTIONS (12)
  - Fall [Recovering/Resolving]
  - Vision blurred [Recovering/Resolving]
  - Head injury [Unknown]
  - Contusion [Recovering/Resolving]
  - Pain in extremity [Unknown]
  - Headache [Not Recovered/Not Resolved]
  - Feeling of body temperature change [Unknown]
  - Chills [Recovering/Resolving]
  - Myalgia [Recovering/Resolving]
  - Loss of consciousness [Recovering/Resolving]
  - Back pain [Recovering/Resolving]
  - Hyperhidrosis [Recovering/Resolving]

NARRATIVE: CASE EVENT DATE: 20191011
